FAERS Safety Report 4386829-7 (Version None)
Quarter: 2004Q2

REPORT INFORMATION
  Report Type: 
  Country: None (occurrence: None)
  Receive Date: 20040622
  Receipt Date: 20040607
  Transmission Date: 20050107
  Serious: Yes (Hospitalization)
  Sender: FDA-Public Use
  Company Number: F01200400124

PATIENT
  Age: 76 Year
  Sex: Female

DRUGS (18)
  1. (OXALIPLATIN) - SOLUTION - 85 MG/M2 [Suspect]
     Indication: COLORECTAL CANCER
     Dosage: 85 MG/M2 Q2W
     Route: 042
     Dates: start: 20031224, end: 20031224
  2. FLUOROURACIL [Suspect]
     Dosage: 400 MG/M2 BOLUS THEN 2400 MG/M2 AS 46 HOURS INFUSION Q2W
     Route: 042
     Dates: start: 20031224, end: 20031224
  3. LEUCOVORIN - SOLUTION - 350 MG [Suspect]
     Dosage: 350 MG Q2W
     Route: 042
     Dates: start: 20031224, end: 20031224
  4. PRILOSEC [Concomitant]
  5. DIOVAN [Concomitant]
  6. POTASSIUM CHLORIDE [Concomitant]
  7. VICODEN (HYDROCODONE TARTRATE+PARACETAMOL) [Concomitant]
  8. SENEKOT (SENNA FRUIT) [Concomitant]
  9. ZOFRAN [Concomitant]
  10. MULTIVITAMIN [Concomitant]
  11. LYSENE (LYSINE) [Concomitant]
  12. PAXIL [Concomitant]
  13. ATIVAN [Concomitant]
  14. TIMOPTIC COLTRATE (TIMOLOL MALEATE) [Concomitant]
  15. AMBIEN [Concomitant]
  16. KYTRIL [Concomitant]
  17. COMPAZINE [Concomitant]
  18. ALPRAZOLAM [Concomitant]

REACTIONS (20)
  - BLOOD GLUCOSE INCREASED [None]
  - BLOOD MAGNESIUM DECREASED [None]
  - BLOOD POTASSIUM DECREASED [None]
  - BLOOD SODIUM DECREASED [None]
  - CEREBRAL ATROPHY [None]
  - CEREBRAL HAEMORRHAGE [None]
  - CEREBRAL ISCHAEMIA [None]
  - ELECTROENCEPHALOGRAM ABNORMAL [None]
  - GRAND MAL CONVULSION [None]
  - HAEMOGLOBIN DECREASED [None]
  - HYPERTENSIVE ENCEPHALOPATHY [None]
  - INFECTION [None]
  - INFLAMMATION [None]
  - INTERNATIONAL NORMALISED RATIO DECREASED [None]
  - MASTOID DISORDER [None]
  - NAUSEA [None]
  - NEUTROPHIL COUNT DECREASED [None]
  - NUCLEAR MAGNETIC RESONANCE IMAGING BRAIN ABNORMAL [None]
  - PLATELET COUNT DECREASED [None]
  - POSTICTAL STATE [None]
